FAERS Safety Report 6209126-3 (Version None)
Quarter: 2009Q2

REPORT INFORMATION
  Report Type: 
  Country: None (occurrence: None)
  Receive Date: 20090529
  Receipt Date: 20090520
  Transmission Date: 20091009
  Serious: Yes (Hospitalization)
  Sender: FDA-Public Use
  Company Number: DE-ABBOTT-09P-062-0564401-00

PATIENT
  Sex: Female
  Weight: 69 kg

DRUGS (2)
  1. HUMIRA [Suspect]
     Indication: CROHN'S DISEASE
     Route: 058
     Dates: start: 20080509, end: 20080523
  2. IRON [Concomitant]
     Indication: IRON DEFICIENCY
     Route: 065

REACTIONS (6)
  - ABDOMINAL MASS [None]
  - CATHETER RELATED INFECTION [None]
  - FOLLICULITIS [None]
  - GENITAL TRACT INFLAMMATION [None]
  - PYREXIA [None]
  - RENAL FAILURE ACUTE [None]
